FAERS Safety Report 5925030-X (Version None)
Quarter: 2008Q4

REPORT INFORMATION
  Report Type: 
  Country: None (occurrence: None)
  Receive Date: 20081021
  Receipt Date: 20081020
  Transmission Date: 20090506
  Serious: Yes (Hospitalization)
  Sender: FDA-Public Use
  Company Number: US-BAYER-200825194NA

PATIENT

DRUGS (1)
  1. MIRENA [Suspect]
     Indication: CONTRACEPTION
     Route: 050
     Dates: start: 20070824, end: 20080508

REACTIONS (3)
  - CAESAREAN SECTION [None]
  - CHEST WALL MASS [None]
  - DRUG EXPOSURE DURING PREGNANCY [None]
